FAERS Safety Report 23724744 (Version 2)
Quarter: 2024Q2

REPORT INFORMATION
  Report Type: Report from Study
  Country: US (occurrence: US)
  Receive Date: 20240409
  Receipt Date: 20240428
  Transmission Date: 20240717
  Serious: No
  Sender: FDA-Public Use
  Company Number: US-ABBVIE-5708268

PATIENT
  Age: 63 Year
  Sex: Female

DRUGS (1)
  1. HUMIRA [Suspect]
     Active Substance: ADALIMUMAB
     Indication: Uveitis
     Route: 058
     Dates: start: 20201120

REACTIONS (3)
  - Bronchitis [Unknown]
  - Pharyngitis streptococcal [Unknown]
  - Sinusitis [Unknown]

NARRATIVE: CASE EVENT DATE: 20240301
